FAERS Safety Report 21015401 (Version 1)
Quarter: 2022Q2

REPORT INFORMATION
  Report Type: Report from Study
  Country: CA (occurrence: CA)
  Receive Date: 20220628
  Receipt Date: 20220628
  Transmission Date: 20220721
  Serious: Yes (Other)
  Sender: FDA-Public Use
  Company Number: CA-BIOGEN-2022BI01135120

PATIENT
  Sex: Female

DRUGS (2)
  1. TECFIDERA [Suspect]
     Active Substance: DIMETHYL FUMARATE
     Indication: Multiple sclerosis
     Dosage: MAINTENANCE DOSE
     Dates: start: 20220528
  2. ADVIL [Suspect]
     Active Substance: IBUPROFEN
     Indication: Product used for unknown indication

REACTIONS (12)
  - Pancreatitis acute [Unknown]
  - Headache [Unknown]
  - Urinary retention [Unknown]
  - Decreased appetite [Unknown]
  - Flatulence [Unknown]
  - Fatigue [Unknown]
  - Frustration tolerance decreased [Unknown]
  - Anxiety [Unknown]
  - Crying [Unknown]
  - Rash [Unknown]
  - Flushing [Unknown]
  - Abdominal discomfort [Unknown]
